FAERS Safety Report 5740498-X (Version None)
Quarter: 2008Q2

REPORT INFORMATION
  Report Type: 
  Country: None (occurrence: None)
  Receive Date: 20080516
  Receipt Date: 20080513
  Transmission Date: 20081010
  Serious: Yes (Life-Threatening, Hospitalization)
  Sender: FDA-Public Use
  Company Number: FR-WYE-G01529308

PATIENT
  Sex: Female

DRUGS (2)
  1. ADVIL [Suspect]
     Dosage: UNKNOWN
     Route: 048
     Dates: start: 20080226, end: 20080303
  2. DOLIPRANE [Concomitant]
     Dosage: UNKNOWN
     Route: 048
     Dates: start: 20080226

REACTIONS (6)
  - CONDITION AGGRAVATED [None]
  - GENERAL PHYSICAL HEALTH DETERIORATION [None]
  - LOBAR PNEUMONIA [None]
  - OTITIS MEDIA [None]
  - PLEURAL EFFUSION [None]
  - PNEUMOCOCCAL INFECTION [None]
